FAERS Safety Report 7791386-9 (Version None)
Quarter: 2011Q4

REPORT INFORMATION
  Report Type: 
  Country: None (occurrence: None)
  Receive Date: 20111003
  Receipt Date: 20110921
  Transmission Date: 20120403
  Serious: Yes (Death, Other)
  Sender: FDA-Public Use
  Company Number: DE-ELI_LILLY_AND_COMPANY-DE201109005775

PATIENT
  Age: 43 Year
  Sex: Female

DRUGS (1)
  1. ZYPREXA [Suspect]
     Indication: SCHIZOPHRENIA
     Dosage: UNK
     Route: 048
     Dates: start: 20100924

REACTIONS (8)
  - DEATH [None]
  - BUNDLE BRANCH BLOCK RIGHT [None]
  - WEIGHT DECREASED [None]
  - LETHARGY [None]
  - DEPRESSED MOOD [None]
  - COMPLETED SUICIDE [None]
  - SINUS BRADYCARDIA [None]
  - FEAR [None]
